FAERS Safety Report 8249772-9 (Version None)
Quarter: 2012Q1

REPORT INFORMATION
  Report Type: 
  Country: None (occurrence: None)
  Receive Date: 20120327
  Receipt Date: 20120319
  Transmission Date: 20120608
  Serious: Yes (Other)
  Sender: FDA-Public Use
  Company Number: 2012SP004344

PATIENT
  Age: 21 Year
  Sex: Female

DRUGS (5)
  1. MULTI-VITAMIN [Concomitant]
  2. FLUOXOCILLIN [Concomitant]
  3. NEXPLANON [Suspect]
     Indication: PRODUCT USED FOR UNKNOWN INDICATION
     Dosage: 1 DF; SBDE
     Route: 059
     Dates: start: 20110916, end: 20120119
  4. EVENING PRIMROSE [Concomitant]
  5. NEXPLANON [Suspect]
     Dosage: SEE IMAGE

REACTIONS (4)
  - ABORTION SPONTANEOUS [None]
  - PREGNANCY WITH IMPLANT CONTRACEPTIVE [None]
  - MATERNAL EXPOSURE DURING PREGNANCY [None]
  - INFECTED DERMAL CYST [None]
